FAERS Safety Report 9720244 (Version 2)
Quarter: 2014Q2

REPORT INFORMATION
  Report Type: Spontaneous
  Country: TR (occurrence: TR)
  Receive Date: 20131129
  Receipt Date: 20140509
  Transmission Date: 20141212
  Serious: Yes (Hospitalization, Disabling)
  Sender: FDA-Public Use
  Company Number: TR-RANBAXY-2013R1-75472

PATIENT
  Age: 25 Year
  Sex: Female

DRUGS (2)
  1. ISOTRETINOIN [Suspect]
     Indication: ACNE
     Dosage: UNK
     Route: 065
  2. ISOTRETINOIN [Suspect]
     Indication: ACNE FULMINANS

REACTIONS (1)
  - Sacroiliitis [Recovered/Resolved]
